FAERS Safety Report 20512855 (Version 1)
Quarter: 2022Q1

REPORT INFORMATION
  Report Type: Spontaneous
  Country: US (occurrence: US)
  Receive Date: 20220224
  Receipt Date: 20220224
  Transmission Date: 20220423
  Serious: Yes (Other)
  Sender: FDA-Public Use
  Company Number: US-COLGATE PALMOLIVE COMPANY-20220200327

PATIENT

DRUGS (1)
  1. COLGATE TOTAL SF WHITENING [Suspect]
     Active Substance: STANNOUS FLUORIDE
     Dosage: UNKNOWN DOSE, BID
     Dates: start: 20220214, end: 202202

REACTIONS (2)
  - Loose tooth [Not Recovered/Not Resolved]
  - Tooth loss [Not Recovered/Not Resolved]

NARRATIVE: CASE EVENT DATE: 20220214
